FAERS Safety Report 16536305 (Version 8)
Quarter: 2020Q4

REPORT INFORMATION
  Report Type: Spontaneous
  Country: US (occurrence: US)
  Receive Date: 20190705
  Receipt Date: 20201210
  Transmission Date: 20210113
  Serious: No
  Sender: FDA-Public Use
  Company Number: US-PFIZER INC-2018108142

PATIENT
  Age: 57 Year
  Sex: Female

DRUGS (6)
  1. RAPAMUNE [Interacting]
     Active Substance: SIROLIMUS
     Dosage: 1.5 MG, DAILY (TAKE 3 TABLETS BY MOUTH DAILY)
     Route: 048
  2. RAPAMUNE [Interacting]
     Active Substance: SIROLIMUS
     Dosage: 1.5 MG, DAILY (0.5 MG, TAKE 2 TABLETS (1 MG) BY MOUTH DAILY, QUANTITY 180)
     Route: 048
  3. RAPAMUNE [Interacting]
     Active Substance: SIROLIMUS
     Dosage: 3.5 MG, DAILY (1 TABLET OF 0.5 MG,  AT 3 MGOF 1 MG)
     Route: 048
  4. RAPAMUNE [Suspect]
     Active Substance: SIROLIMUS
     Indication: LUNG TRANSPLANT
     Dosage: 2 MG, DAILY (4 TABLETS BY MOUTH DAILY)
     Route: 048
  5. RAPAMUNE [Interacting]
     Active Substance: SIROLIMUS
     Dosage: 3 MG, DAILY (6 TABLETS BY MOUTH DAILY)
     Route: 048
  6. RAPAMUNE [Interacting]
     Active Substance: SIROLIMUS
     Dosage: 2 MG (2 TABLETS OF 1 MG)
     Route: 048

REACTIONS (2)
  - Off label use [Unknown]
  - Drug interaction [Unknown]
